FAERS Safety Report 20432799 (Version 1)
Quarter: 2022Q1

REPORT INFORMATION
  Report Type: Other
  Country: US (occurrence: US)
  Receive Date: 20220205
  Receipt Date: 20220205
  Transmission Date: 20220423
  Serious: Yes (Other)
  Sender: FDA-Public Use
  Company Number: US-NEUROCRINE BIOSCIENCES INC.-2022NBI00526

PATIENT

DRUGS (1)
  1. INGREZZA [Suspect]
     Active Substance: VALBENAZINE
     Indication: Dystonia
     Dosage: 80 MILLIGRAM, QD
     Route: 048
     Dates: start: 20211231

REACTIONS (2)
  - Surgery [Unknown]
  - Off label use [Unknown]
